FAERS Safety Report 12774221 (Version 1)
Quarter: 2016Q3

REPORT INFORMATION
  Report Type: Spontaneous
  Country: US (occurrence: US)
  Receive Date: 20160923
  Receipt Date: 20160923
  Transmission Date: 20161109
  Serious: No
  Sender: FDA-Public Use
  Company Number: US-PFIZER INC-2016441219

PATIENT
  Sex: Female

DRUGS (6)
  1. DIPHENHYDRAMINE HCL [Suspect]
     Active Substance: DIPHENHYDRAMINE HYDROCHLORIDE
  2. HYDROCODONE [Suspect]
     Active Substance: HYDROCODONE
  3. TRAMADOL. [Suspect]
     Active Substance: TRAMADOL
  4. CODEINE PHOSPHATE [Suspect]
     Active Substance: CODEINE PHOSPHATE
  5. VENLAFAXINE HCL [Suspect]
     Active Substance: VENLAFAXINE HYDROCHLORIDE
  6. DULOXETINE. [Suspect]
     Active Substance: DULOXETINE

REACTIONS (1)
  - Drug hypersensitivity [Unknown]
